FAERS Safety Report 10049577 (Version 1)
Quarter: 2014Q2

REPORT INFORMATION
  Report Type: Spontaneous
  Country: US (occurrence: US)
  Receive Date: 20140401
  Receipt Date: 20140401
  Transmission Date: 20141212
  Serious: No
  Sender: FDA-Public Use
  Company Number: US-BAYER-2014-045081

PATIENT
  Age: 29 Year
  Sex: Female

DRUGS (1)
  1. SAFYRAL [Suspect]
     Indication: CONTRACEPTION
     Dosage: UNK
     Dates: start: 2013, end: 201401

REACTIONS (2)
  - Full blood count increased [Recovered/Resolved]
  - Abdominal pain upper [Recovered/Resolved]
